FAERS Safety Report 15165593 (Version 6)
Quarter: 2019Q1

REPORT INFORMATION
  Report Type: Report from Study
  Country: US (occurrence: US)
  Receive Date: 20180719
  Receipt Date: 20190329
  Transmission Date: 20190417
  Serious: Yes (Hospitalization, Other)
  Sender: FDA-Public Use
  Company Number: PHHY2018US031599

PATIENT
  Age: 42 Year
  Sex: Female
  Weight: 59.88 kg

DRUGS (40)
  1. CAYSTON [Suspect]
     Active Substance: AZTREONAM
     Indication: BACTERIAL DISEASE CARRIER
     Dosage: UNK
     Route: 055
     Dates: start: 20180901, end: 20180928
  2. PROMETHAZINE [Concomitant]
     Active Substance: PROMETHAZINE\PROMETHAZINE HYDROCHLORIDE
     Indication: NAUSEA
     Dosage: 25 MG, Q6H, PRN
     Route: 048
     Dates: start: 201510
  3. OXYGEN. [Concomitant]
     Active Substance: OXYGEN
     Indication: CYSTIC FIBROSIS LUNG
     Dosage: 2 L, PRN
     Route: 045
     Dates: start: 20150902
  4. PULMOZYME [Concomitant]
     Active Substance: DORNASE ALFA
     Indication: CYSTIC FIBROSIS
     Dosage: 2.5 MG, QD
     Route: 055
     Dates: start: 1999
  5. NEXIUM [Concomitant]
     Active Substance: ESOMEPRAZOLE MAGNESIUM
     Indication: GASTROOESOPHAGEAL REFLUX DISEASE
     Dosage: 40 MG, QD
     Route: 048
     Dates: start: 20070101
  6. NEUROTIN [Concomitant]
     Active Substance: GABAPENTIN
     Indication: PAIN
     Dosage: UNK
     Route: 065
     Dates: start: 20170429, end: 20171005
  7. CAYSTON [Suspect]
     Active Substance: AZTREONAM
     Dosage: UNK
     Route: 065
     Dates: start: 20160930, end: 20161027
  8. MULTIVITAMIN [Concomitant]
     Active Substance: VITAMINS
     Indication: MALABSORPTION
     Dosage: 1 DF, BID
     Route: 048
     Dates: start: 2006
  9. SODIUM CHLORIDE. [Concomitant]
     Active Substance: SODIUM CHLORIDE
     Dosage: UNK
     Route: 065
     Dates: start: 20081101, end: 20161020
  10. KALYDECO [Concomitant]
     Active Substance: IVACAFTOR
     Indication: CYSTIC FIBROSIS
     Dosage: 150 MG, BID
     Route: 048
     Dates: start: 20171101
  11. TRAZODONE [Concomitant]
     Active Substance: TRAZODONE HYDROCHLORIDE
     Indication: ANXIETY
     Dosage: 50 MG, PRN
     Route: 048
     Dates: start: 201701
  12. RIFABUTIN. [Concomitant]
     Active Substance: RIFABUTIN
     Indication: MYCOBACTERIUM AVIUM COMPLEX INFECTION
     Dosage: 300 MG, QD
     Route: 048
     Dates: start: 20030102, end: 201710
  13. CAYSTON [Suspect]
     Active Substance: AZTREONAM
     Dosage: 75 MG, TID (28 DAYS ON, 28 DAYS OFF)
     Route: 055
  14. ONDANSETRON [Concomitant]
     Active Substance: ONDANSETRON
     Indication: NAUSEA
     Dosage: 4 MG, Q8H, PRN
     Route: 048
     Dates: start: 20151001
  15. ALBUTEROL. [Concomitant]
     Active Substance: ALBUTEROL
     Indication: CYSTIC FIBROSIS
     Dosage: 2 PUFF, BID (15 MG, QD)
     Route: 055
     Dates: start: 19990101
  16. LACTOBACILLUS [Concomitant]
     Active Substance: LACTOBACILLUS ACIDOPHILUS
     Indication: PROPHYLAXIS AGAINST DIARRHOEA
     Dosage: 1 DF, QD
     Route: 048
     Dates: start: 20170426
  17. ETHAMBUTOL [Concomitant]
     Active Substance: ETHAMBUTOL HYDROCHLORIDE
     Indication: MYCOBACTERIUM AVIUM COMPLEX INFECTION
     Dosage: 800 MG, QD
     Route: 048
     Dates: start: 20040101, end: 20171001
  18. INFLUENZA VACCINE [Concomitant]
     Active Substance: INFLUENZA VIRUS VACCINE
     Indication: PROPHYLAXIS
     Dosage: UNK
     Route: 065
     Dates: start: 20171005, end: 20171005
  19. PANCREASE MT [Concomitant]
     Active Substance: PANCRELIPASE
     Indication: PANCREATITIS
     Dosage: SLIDING SCALE
     Route: 065
     Dates: start: 20100101
  20. SODIUM CHLORIDE. [Concomitant]
     Active Substance: SODIUM CHLORIDE
     Indication: CYSTIC FIBROSIS
     Dosage: 3 ML, BID
     Route: 055
     Dates: start: 20171005
  21. CIPROFLOXACIN. [Concomitant]
     Active Substance: CIPROFLOXACIN
     Indication: INFECTIVE PULMONARY EXACERBATION OF CYSTIC FIBROSIS
     Dosage: UNK
     Route: 065
     Dates: start: 20161021, end: 20161103
  22. INFLUENZA VACCINE [Concomitant]
     Active Substance: INFLUENZA VIRUS VACCINE
     Dosage: UNK
     Route: 065
     Dates: start: 20190117, end: 20190117
  23. MARINOL [Concomitant]
     Active Substance: DRONABINOL
     Indication: DECREASED APPETITE
     Dosage: UNK
     Route: 065
     Dates: start: 20170429, end: 20180329
  24. SINGULAIR [Concomitant]
     Active Substance: MONTELUKAST SODIUM
     Indication: SINUS DISORDER
     Dosage: 10 MG, QD
     Route: 048
     Dates: start: 1999
  25. ZYRTEC [Concomitant]
     Active Substance: CETIRIZINE HYDROCHLORIDE
     Indication: HYPERSENSITIVITY
     Dosage: 10 MG, PRN
     Route: 048
     Dates: start: 20170427
  26. BUSPAR [Concomitant]
     Active Substance: BUSPIRONE HYDROCHLORIDE
     Indication: ANXIETY
     Dosage: 15 MG, BID
     Route: 048
     Dates: start: 20180101, end: 20180401
  27. ZOLOFT [Concomitant]
     Active Substance: SERTRALINE HYDROCHLORIDE
     Indication: DEPRESSION
     Dosage: 150 MG, QD
     Route: 048
     Dates: start: 20170101
  28. FLUTICASONE. [Concomitant]
     Active Substance: FLUTICASONE
     Indication: SINUS DISORDER
     Dosage: 2 SPRAY, QD
     Route: 045
     Dates: start: 20020101
  29. VYVANSE [Concomitant]
     Active Substance: LISDEXAMFETAMINE DIMESYLATE
     Indication: DEPRESSION
     Dosage: 40 MG, QD
     Route: 048
     Dates: start: 20170901
  30. PANCREASE MT [Concomitant]
     Active Substance: PANCRELIPASE
     Indication: PANCREATIC FAILURE
  31. VITAMIN K [Concomitant]
     Active Substance: PHYTONADIONE
     Indication: MALABSORPTION
     Dosage: 2.5 MG, QW (3 TIMES A WEEK)
     Route: 048
     Dates: start: 2009
  32. OXYCODONE [Concomitant]
     Active Substance: OXYCODONE
     Indication: ABDOMINAL PAIN
     Dosage: 10-20 MG OF 30, PRN
     Route: 048
     Dates: start: 20170509, end: 20170823
  33. OXYCODONE [Concomitant]
     Active Substance: OXYCODONE
     Indication: CHEST PAIN
  34. CIPROFLOXACIN. [Concomitant]
     Active Substance: CIPROFLOXACIN
     Indication: SINUSITIS
     Dosage: 750 MG, BID
     Route: 048
     Dates: start: 20171015, end: 20171019
  35. ASMANEX [Concomitant]
     Active Substance: MOMETASONE FUROATE
     Indication: CYSTIC FIBROSIS LUNG
     Dosage: UNK
     Route: 065
     Dates: start: 20180706
  36. TOBI [Suspect]
     Active Substance: TOBRAMYCIN
     Indication: CYSTIC FIBROSIS
     Dosage: 300 MG, BID
     Route: 055
  37. TOBI [Suspect]
     Active Substance: TOBRAMYCIN
     Dosage: 300 MG, BID
     Route: 055
     Dates: start: 20180620, end: 20180621
  38. VITAMIN D [Concomitant]
     Active Substance: CHOLECALCIFEROL
     Indication: MALABSORPTION
     Dosage: 2000 IU, BID
     Route: 048
     Dates: start: 2014
  39. AZITHROMYCIN ANHYDROUS. [Concomitant]
     Active Substance: AZITHROMYCIN ANHYDROUS
     Indication: BACTERIAL DISEASE CARRIER
     Dosage: 500 MG, (MONDAY-FRIDAY)
     Route: 048
     Dates: start: 20110501, end: 20180401
  40. ZOLOFT [Concomitant]
     Active Substance: SERTRALINE HYDROCHLORIDE
     Dosage: UNK
     Route: 065
     Dates: start: 20180214

REACTIONS (37)
  - Infective pulmonary exacerbation of cystic fibrosis [Recovered/Resolved]
  - Cough [Recovered/Resolved]
  - Concomitant disease aggravated [Recovering/Resolving]
  - Anxiety [Recovered/Resolved]
  - Platelet count decreased [Not Recovered/Not Resolved]
  - Neutrophil count increased [Recovered/Resolved]
  - Lymphocyte count decreased [Recovered/Resolved]
  - C-reactive protein increased [Not Recovered/Not Resolved]
  - Red blood cell count decreased [Unknown]
  - Blood urea nitrogen/creatinine ratio increased [Unknown]
  - Blood calcium decreased [Unknown]
  - Lipase decreased [Unknown]
  - Infective pulmonary exacerbation of cystic fibrosis [Unknown]
  - Lung abscess [Recovered/Resolved]
  - Haemoglobin decreased [Unknown]
  - Eosinophil count increased [Not Recovered/Not Resolved]
  - Hilar lymphadenopathy [Unknown]
  - Basophil count abnormal [Not Recovered/Not Resolved]
  - Dyspnoea [Recovered/Resolved]
  - Cellulitis orbital [Recovered/Resolved]
  - Lymphadenopathy mediastinal [Unknown]
  - Pulmonary mass [Unknown]
  - Sinusitis [Recovered/Resolved]
  - Wheezing [Unknown]
  - Musculoskeletal chest pain [Not Recovered/Not Resolved]
  - Pancreatitis chronic [Recovered/Resolved]
  - Bronchiectasis [Unknown]
  - Infective pulmonary exacerbation of cystic fibrosis [Recovered/Resolved]
  - Neutrophil count increased [Recovered/Resolved]
  - Chest pain [Recovered/Resolved]
  - Sputum increased [Recovered/Resolved]
  - Musculoskeletal chest pain [Recovered/Resolved]
  - Infective pulmonary exacerbation of cystic fibrosis [Recovered/Resolved]
  - White blood cell count decreased [Unknown]
  - Haematocrit decreased [Unknown]
  - Aspartate aminotransferase increased [Unknown]
  - Alanine aminotransferase increased [Unknown]

NARRATIVE: CASE EVENT DATE: 20161006
